FAERS Safety Report 18228434 (Version 1)
Quarter: 2020Q3

REPORT INFORMATION
  Report Type: Spontaneous
  Country: US (occurrence: US)
  Receive Date: 20200903
  Receipt Date: 20200903
  Transmission Date: 20201103
  Serious: No
  Sender: FDA-Public Use
  Company Number: US-MYLANLABS-2020M1073064

PATIENT
  Age: 63 Year
  Sex: Female
  Weight: 77 kg

DRUGS (1)
  1. FULPHILA [Suspect]
     Active Substance: PEGFILGRASTIM-JMDB
     Indication: CHEMOTHERAPY SIDE EFFECT PROPHYLAXIS
     Dosage: UNK UNK, QD (ONCE)
     Route: 058
     Dates: start: 20200808, end: 20200808

REACTIONS (1)
  - Wrong schedule [Recovered/Resolved]

NARRATIVE: CASE EVENT DATE: 20200808
